FAERS Safety Report 17669105 (Version 1)
Quarter: 2020Q2

REPORT INFORMATION
  Report Type: Spontaneous
  Country: PR (occurrence: US)
  Receive Date: 20200415
  Receipt Date: 20200415
  Transmission Date: 20200713
  Serious: Yes (Other)
  Sender: FDA-Public Use
  Company Number: PR-ABBVIE-20K-131-3341535-00

PATIENT
  Age: 43 Year
  Sex: Female

DRUGS (1)
  1. HUMIRA [Suspect]
     Active Substance: ADALIMUMAB
     Indication: RHEUMATOID ARTHRITIS
     Route: 058

REACTIONS (5)
  - Wrong technique in product usage process [Recovered/Resolved]
  - Metaplasia [Unknown]
  - Uterine cancer [Unknown]
  - Device issue [Recovered/Resolved]
  - Cervical cyst [Unknown]

NARRATIVE: CASE EVENT DATE: 20200326
